FAERS Safety Report 23957291 (Version 4)
Quarter: 2025Q2

REPORT INFORMATION
  Report Type: Report from Study
  Country: CA (occurrence: CA)
  Receive Date: 20240610
  Receipt Date: 20250522
  Transmission Date: 20250717
  Serious: Yes (Other)
  Sender: TAKEDA
  Company Number: CA-TAKEDA-2017TUS015534

PATIENT
  Age: 33 Year
  Sex: Female
  Weight: 72 kg

DRUGS (5)
  1. VEDOLIZUMAB [Suspect]
     Active Substance: VEDOLIZUMAB
     Indication: Crohn^s disease
  2. VEDOLIZUMAB [Suspect]
     Active Substance: VEDOLIZUMAB
     Dosage: 300 MILLIGRAM, Q4WEEKS
     Dates: start: 20170818
  3. VEDOLIZUMAB [Suspect]
     Active Substance: VEDOLIZUMAB
     Indication: Crohn^s disease
     Dosage: 108 MILLIGRAM, Q2WEEKS
     Dates: start: 20230602
  4. IRON [Concomitant]
     Active Substance: IRON
  5. B12 [Concomitant]

REACTIONS (12)
  - Pancreatitis [Recovering/Resolving]
  - Crohn^s disease [Recovering/Resolving]
  - Blood pressure abnormal [Unknown]
  - Serum ferritin decreased [Unknown]
  - Frequent bowel movements [Recovered/Resolved]
  - Abdominal pain upper [Unknown]
  - Cholelithiasis [Unknown]
  - Blood iron decreased [Unknown]
  - Defaecation urgency [Unknown]
  - Diarrhoea [Recovered/Resolved]
  - Gastritis [Recovering/Resolving]
  - Nausea [Unknown]

NARRATIVE: CASE EVENT DATE: 20170718
